FAERS Safety Report 5851987-1 (Version None)
Quarter: 2008Q3

REPORT INFORMATION
  Report Type: 
  Country: None (occurrence: None)
  Receive Date: 20080820
  Receipt Date: 20080814
  Transmission Date: 20090109
  Serious: Yes (Other)
  Sender: FDA-Public Use
  Company Number: US-ALLERGAN-0810049US

PATIENT
  Sex: Female

DRUGS (1)
  1. PRED FORTE [Suspect]
     Indication: INFLAMMATION
     Dates: start: 20080807, end: 20080807

REACTIONS (2)
  - CONFUSIONAL STATE [None]
  - PARANOIA [None]
